FAERS Safety Report 23138185 (Version 2)
Quarter: 2023Q4

REPORT INFORMATION
  Report Type: Spontaneous
  Country: US (occurrence: None)
  Receive Date: 20231102
  Receipt Date: 20231222
  Transmission Date: 20240109
  Serious: Yes (Hospitalization)
  Sender: FDA-Public Use
  Company Number: 2023A246195

PATIENT

DRUGS (2)
  1. FASENRA [Suspect]
     Active Substance: BENRALIZUMAB
     Route: 058
  2. FASENRA [Concomitant]
     Active Substance: BENRALIZUMAB

REACTIONS (2)
  - Illness [Unknown]
  - Therapy non-responder [Unknown]
